FAERS Safety Report 5205206-X (Version None)
Quarter: 2006Q4

REPORT INFORMATION
  Report Type: 
  Country: None (occurrence: None)
  Receive Date: 20061027
  Receipt Date: 20060410
  Transmission Date: 20070319
  Serious: Yes (Hospitalization, Other)
  Sender: FDA-Public Use
  Company Number: HQWYE597826AUG04

PATIENT
  Age: 63 Year
  Sex: Female
  Weight: 52.21 kg

DRUGS (3)
  1. PREMARIN [Suspect]
     Indication: OESTROGEN REPLACEMENT THERAPY
     Dosage: ORAL
     Route: 048
     Dates: start: 19840101, end: 19940101
  2. PROVERA [Suspect]
     Indication: HORMONE REPLACEMENT THERAPY
  3. SYNTHROID [Concomitant]

REACTIONS (1)
  - BREAST CANCER [None]
